FAERS Safety Report 10881144 (Version 1)
Quarter: 2015Q1

REPORT INFORMATION
  Report Type: Spontaneous
  Country: US (occurrence: None)
  Receive Date: 20150225
  Receipt Date: 20150225
  Transmission Date: 20150721
  Serious: No
  Sender: FDA-Public Use
  Company Number: None

PATIENT
  Age: 65 Year
  Sex: Female

DRUGS (2)
  1. STIVARGA [Suspect]
     Active Substance: REGORAFENIB
     Indication: COLON CANCER
     Dosage: 4 TABLETS DAILY ON DAYS 1-21 OF EACH 28
     Route: 048
     Dates: start: 20150121, end: 20150224
  2. STIVARGA [Suspect]
     Active Substance: REGORAFENIB
     Indication: COLON CANCER
     Dosage: 3 TABLETS DAILY ON DAYS 1-21 OF EACH 28
     Route: 048

REACTIONS (2)
  - Therapy change [None]
  - Diarrhoea [None]

NARRATIVE: CASE EVENT DATE: 20150218
